FAERS Safety Report 15292369 (Version 1)
Quarter: 2018Q3

REPORT INFORMATION
  Report Type: Spontaneous
  Country: US (occurrence: US)
  Receive Date: 20180806
  Receipt Date: 20180806
  Transmission Date: 20181010
  Serious: No
  Sender: FDA-Public Use
  Company Number: None

PATIENT
  Sex: Female
  Weight: 74.84 kg

DRUGS (1)
  1. OTEZLA [Suspect]
     Active Substance: APREMILAST
     Indication: PSORIASIS
     Route: 048
     Dates: start: 201807

REACTIONS (7)
  - Eating disorder [None]
  - Headache [None]
  - Lethargy [None]
  - Malaise [None]
  - Nausea [None]
  - Weight decreased [None]
  - Diarrhoea [None]
